FAERS Safety Report 9132907 (Version 2)
Quarter: 2013Q2

REPORT INFORMATION
  Report Type: Spontaneous
  Country: US (occurrence: US)
  Receive Date: 20130301
  Receipt Date: 20130415
  Transmission Date: 20140414
  Serious: No
  Sender: FDA-Public Use
  Company Number: US-PFIZER INC-2013069973

PATIENT
  Age: 72 Year
  Sex: Female
  Weight: 72.56 kg

DRUGS (9)
  1. ALPRAZOLAM [Suspect]
     Indication: DIZZINESS
     Dosage: 0.5 MG, 4X/DAY
     Route: 048
     Dates: start: 20130209, end: 20130213
  2. ALPRAZOLAM [Suspect]
     Indication: ANXIETY
  3. XANAX [Suspect]
     Dosage: UNK
     Route: 048
     Dates: start: 1988
  4. ANTIVERT [Concomitant]
     Indication: DIZZINESS
     Dosage: UNK
  5. ACCURETIC [Concomitant]
     Dosage: UNK
  6. VERAPAMIL [Concomitant]
     Indication: HEART RATE INCREASED
     Dosage: UNK
  7. CARAFATE [Concomitant]
     Dosage: UNK
  8. X-STRENGTH TYLENOL [Concomitant]
     Dosage: UNK
  9. B12 [Concomitant]
     Dosage: UNK

REACTIONS (10)
  - Diarrhoea [Recovering/Resolving]
  - Abdominal discomfort [Recovering/Resolving]
  - Gastric disorder [Recovering/Resolving]
  - Blood potassium increased [Unknown]
  - Blood sodium decreased [Unknown]
  - Blood calcium decreased [Unknown]
  - White blood cell count decreased [Unknown]
  - Electrolyte imbalance [Unknown]
  - Influenza [Unknown]
  - Off label use [Unknown]
